FAERS Safety Report 5749217-4 (Version None)
Quarter: 2008Q2

REPORT INFORMATION
  Report Type: 
  Country: None (occurrence: None)
  Receive Date: 20080527
  Receipt Date: 20080515
  Transmission Date: 20081010
  Serious: Yes (Hospitalization)
  Sender: FDA-Public Use
  Company Number: AE-AMGEN-UK277954

PATIENT
  Sex: Female

DRUGS (6)
  1. NEULASTIM [Suspect]
     Indication: CHEMOTHERAPY
  2. RITUXIMAB [Concomitant]
  3. VINCRISTINE [Concomitant]
  4. PREDNISONE TAB [Concomitant]
  5. DOXORUBICIN HYDROCHLORIDE [Concomitant]
  6. CYCLOPHOSPHAMIDE [Concomitant]

REACTIONS (2)
  - GASTROENTERITIS [None]
  - NEUTROPENIA [None]
